FAERS Safety Report 23495090 (Version 1)
Quarter: 2024Q1

REPORT INFORMATION
  Report Type: Spontaneous
  Country: US (occurrence: US)
  Receive Date: 20240207
  Receipt Date: 20240207
  Transmission Date: 20240410
  Serious: No
  Sender: FDA-Public Use
  Company Number: US-JNJFOC-20240176317

PATIENT
  Age: 90 Year
  Sex: Female

DRUGS (1)
  1. TYLENOL 8 HR ARTHRITIS PAIN [Suspect]
     Active Substance: ACETAMINOPHEN
     Indication: Arthralgia
     Dosage: JUST TAKING 6 A DAY, AND, YOU KNOW, KIND OF RELEASING OR STOPPING, I TAKE ANOTHER ONE, BEEN TAKING T
     Route: 065
     Dates: start: 20240121

REACTIONS (3)
  - Discomfort [Unknown]
  - Incorrect dose administered [Unknown]
  - Inappropriate schedule of product administration [Unknown]

NARRATIVE: CASE EVENT DATE: 20240101
